FAERS Safety Report 9504852 (Version 2)
Quarter: 2013Q3

REPORT INFORMATION
  Report Type: Spontaneous
  Country: CN (occurrence: CN)
  Receive Date: 20130906
  Receipt Date: 20130906
  Transmission Date: 20140515
  Serious: Yes (Other)
  Sender: FDA-Public Use
  Company Number: ALCN2013CN004067

PATIENT
  Age: 4 Year
  Sex: Male

DRUGS (2)
  1. TOBRADEX [Suspect]
     Indication: CONJUNCTIVITIS
     Dosage: UNK GTT, TID
     Route: 047
     Dates: start: 20130630, end: 20130708
  2. TOBRADEX [Suspect]
     Indication: CONJUNCTIVITIS
     Dosage: UNK DF, BID
     Route: 047
     Dates: start: 20130630, end: 20130708

REACTIONS (5)
  - Borderline glaucoma [Recovered/Resolved]
  - Intraocular pressure increased [Recovered/Resolved]
  - Eye pain [Recovered/Resolved]
  - Headache [Recovered/Resolved]
  - Nausea [Recovered/Resolved]
